FAERS Safety Report 18304713 (Version 1)
Quarter: 2020Q3

REPORT INFORMATION
  Report Type: Spontaneous
  Country: US (occurrence: US)
  Receive Date: 20200923
  Receipt Date: 20200923
  Transmission Date: 20201103
  Serious: Yes (Other)
  Sender: FDA-Public Use
  Company Number: US-ALEXION-A202013821

PATIENT
  Sex: Female

DRUGS (1)
  1. STRENSIQ [Suspect]
     Active Substance: ASFOTASE ALFA
     Indication: HYPOPHOSPHATASIA
     Dosage: UNK, UNK
     Route: 058

REACTIONS (2)
  - Renal impairment [Not Recovered/Not Resolved]
  - Nephrocalcinosis [Not Recovered/Not Resolved]
